FAERS Safety Report 4626174-5 (Version None)
Quarter: 2005Q2

REPORT INFORMATION
  Report Type: 
  Country: None (occurrence: None)
  Receive Date: 20050331
  Receipt Date: 20040601
  Transmission Date: 20051028
  Serious: Yes (Other)
  Sender: FDA-Public Use
  Company Number: 200412709BCC

PATIENT
  Age: 76 Year
  Sex: Female
  Weight: 58.514 kg

DRUGS (5)
  1. ALEVE [Suspect]
     Indication: OSTEOARTHRITIS
     Dosage: ORAL
     Route: 048
  2. PEPCID [Concomitant]
  3. NORVASC [Concomitant]
  4. DIURIL [Concomitant]
  5. MULTI-VITAMIN [Concomitant]

REACTIONS (1)
  - DUODENAL ULCER [None]
